FAERS Safety Report 10096663 (Version 1)
Quarter: 2014Q2

REPORT INFORMATION
  Report Type: Spontaneous
  Country: IT (occurrence: IT)
  Receive Date: 20140422
  Receipt Date: 20140422
  Transmission Date: 20141212
  Serious: Yes (Other)
  Sender: FDA-Public Use
  Company Number: IT-WATSON-2014-07820

PATIENT
  Age: 82 Year
  Sex: Female

DRUGS (7)
  1. METFORMIN (UNKNOWN) [Suspect]
     Indication: DIABETES MELLITUS
     Dosage: 500 MG, DAILY
     Route: 048
     Dates: start: 20050204, end: 20131209
  2. SOLOSA [Suspect]
     Indication: DIABETES MELLITUS
     Dosage: 4 MG, DAILY
     Route: 048
     Dates: start: 20070517, end: 20131209
  3. EUTIROX [Concomitant]
     Indication: HYPOTHYROIDISM
     Dosage: 100 MCG
     Route: 048
     Dates: start: 2004
  4. ENAPREN [Concomitant]
     Indication: HYPERTENSION
     Dosage: 20 MG, UNK
     Route: 048
     Dates: start: 2004
  5. NORVASC [Concomitant]
     Indication: HYPERTENSION
     Dosage: 5 MG, UNK
     Route: 048
     Dates: start: 2004
  6. SAFLUTAN [Concomitant]
     Indication: GLAUCOMA
     Dosage: 2 DF, UNK
     Route: 047
     Dates: start: 2011
  7. AZOPT [Concomitant]
     Indication: GLAUCOMA
     Dosage: 2 DF, UNK
     Route: 047
     Dates: start: 2011

REACTIONS (3)
  - Malaise [Recovering/Resolving]
  - Asthenia [Recovering/Resolving]
  - Sweat gland disorder [Recovering/Resolving]
